FAERS Safety Report 16581627 (Version 1)
Quarter: 2019Q3

REPORT INFORMATION
  Report Type: Spontaneous
  Country: US (occurrence: US)
  Receive Date: 20190716
  Receipt Date: 20190716
  Transmission Date: 20191004
  Serious: No
  Sender: FDA-Public Use
  Company Number: US-EX USA HOLDINGS-EXHL20192313

PATIENT
  Sex: Female

DRUGS (1)
  1. INTROVALE [Suspect]
     Active Substance: ETHINYL ESTRADIOL\LEVONORGESTREL
     Indication: PRODUCT USED FOR UNKNOWN INDICATION
     Dosage: UNKNOWN
     Route: 048
     Dates: start: 201905

REACTIONS (4)
  - Gastrointestinal disorder [Unknown]
  - Fatigue [Unknown]
  - Headache [Unknown]
  - Product substitution issue [None]

NARRATIVE: CASE EVENT DATE: 201905
